FAERS Safety Report 11843762 (Version 1)
Quarter: 2015Q4

REPORT INFORMATION
  Report Type: Spontaneous
  Country: IT (occurrence: IT)
  Receive Date: 20151217
  Receipt Date: 20151217
  Transmission Date: 20160305
  Serious: Yes (Other)
  Sender: FDA-Public Use
  Company Number: IT-ACCORD-036368

PATIENT
  Age: 3 Year
  Sex: Male

DRUGS (2)
  1. TOPOTECAN/TOPOTECAN HYDROCHLORIDE [Suspect]
     Active Substance: TOPOTECAN\TOPOTECAN HYDROCHLORIDE
     Indication: RETINOBLASTOMA
     Dosage: AS A PART OF 2 CYCLES OF SUPERSELECTIVE OPHTHALMIC ARTERY INFUSION (SOAI)
     Route: 013
  2. MELPHALAN [Suspect]
     Active Substance: MELPHALAN
     Indication: RETINOBLASTOMA
     Dosage: SIX INFUSIONS OF 5 ?G MELPHALAN.?ALSO RECEIVED 10 INTRAVITREAL MELPHALAN INJECTIONS (20?G EACH ONE)
     Route: 013

REACTIONS (6)
  - Hypotonia [Not Recovered/Not Resolved]
  - Chorioretinal atrophy [Not Recovered/Not Resolved]
  - Lenticular opacities [Not Recovered/Not Resolved]
  - Venous thrombosis [Recovered/Resolved]
  - Product use issue [Unknown]
  - Off label use [Unknown]
